FAERS Safety Report 10541796 (Version 1)
Quarter: 2014Q4

REPORT INFORMATION
  Report Type: Spontaneous
  Country: US (occurrence: US)
  Receive Date: 20141024
  Receipt Date: 20141024
  Transmission Date: 20150529
  Serious: Yes (Death, Hospitalization)
  Sender: FDA-Public Use
  Company Number: US-ARIAD PHARMACEUTICALS, INC-2014US003866

PATIENT

DRUGS (1)
  1. ICLUSIG [Suspect]
     Active Substance: PONATINIB
     Indication: CHRONIC MYELOID LEUKAEMIA
     Dosage: 30 MG (2X15MG TABLETS), UNK
     Route: 048
     Dates: start: 20140605

REACTIONS (2)
  - Investigation [Unknown]
  - Death [Fatal]

NARRATIVE: CASE EVENT DATE: 20140730
